FAERS Safety Report 16279952 (Version 1)
Quarter: 2019Q2

REPORT INFORMATION
  Report Type: Spontaneous
  Country: US (occurrence: US)
  Receive Date: 20190507
  Receipt Date: 20190507
  Transmission Date: 20190711
  Serious: Yes (Life-Threatening, Hospitalization, Other)
  Sender: FDA-Public Use
  Company Number: US-AUROBINDO-AUR-APL-2019-024535

PATIENT

DRUGS (1)
  1. LOPERAMIDE [Suspect]
     Active Substance: LOPERAMIDE
     Indication: DRUG WITHDRAWAL SYNDROME
     Dosage: 280 MILLIGRAM, DAILY
     Route: 065

REACTIONS (4)
  - Electrocardiogram QT prolonged [Unknown]
  - Drug abuse [Unknown]
  - Torsade de pointes [Recovered/Resolved]
  - Seizure [Unknown]
